FAERS Safety Report 9418646 (Version 1)
Quarter: 2013Q3

REPORT INFORMATION
  Report Type: Spontaneous
  Country: US (occurrence: US)
  Receive Date: 20130725
  Receipt Date: 20130725
  Transmission Date: 20140515
  Serious: No
  Sender: FDA-Public Use
  Company Number: US-009507513-1307USA013122

PATIENT
  Sex: Female
  Weight: 60.14 kg

DRUGS (4)
  1. IMPLANON [Suspect]
     Indication: CONTRACEPTION
     Dosage: UNK
     Route: 059
     Dates: start: 201012
  2. GABAPENTIN [Concomitant]
  3. CYMBALTA [Concomitant]
  4. NADOLOL [Concomitant]

REACTIONS (1)
  - Adverse event [Not Recovered/Not Resolved]
